FAERS Safety Report 21895070 (Version 1)
Quarter: 2023Q1

REPORT INFORMATION
  Report Type: Spontaneous
  Country: RU (occurrence: RU)
  Receive Date: 20230122
  Receipt Date: 20230122
  Transmission Date: 20230418
  Serious: Yes (Other)
  Sender: FDA-Public Use
  Company Number: RU-SUNPHARMA-2023R1-373957AA

PATIENT
  Age: 32 Year
  Sex: Female

DRUGS (2)
  1. GEMCITABINE [Suspect]
     Active Substance: GEMCITABINE
     Indication: Solid pseudopapillary tumour of the pancreas
     Dosage: 6 CYCLES
     Route: 065
     Dates: start: 2017, end: 201803
  2. OXALIPLATIN [Suspect]
     Active Substance: OXALIPLATIN
     Indication: Solid pseudopapillary tumour of the pancreas
     Dosage: 6 CYCLES
     Route: 065
     Dates: start: 2017, end: 201803

REACTIONS (1)
  - Metastases to liver [Unknown]
